FAERS Safety Report 10477318 (Version 1)
Quarter: 2014Q3

REPORT INFORMATION
  Report Type: Spontaneous
  Country: US (occurrence: None)
  Receive Date: 20140925
  Receipt Date: 20140925
  Transmission Date: 20150326
  Serious: Yes (Other)
  Sender: FDA-Public Use
  Company Number: None

PATIENT
  Age: 42 Year
  Sex: Male

DRUGS (1)
  1. QUETIAPINE [Suspect]
     Active Substance: QUETIAPINE
     Indication: AGITATION
     Dosage: BEDTIME
     Route: 048
     Dates: start: 20140515, end: 20140909

REACTIONS (2)
  - Mental status changes [None]
  - Rhabdomyolysis [None]

NARRATIVE: CASE EVENT DATE: 20140910
